FAERS Safety Report 20932059 (Version 1)
Quarter: 2022Q2

REPORT INFORMATION
  Report Type: Other
  Country: CN (occurrence: CN)
  Receive Date: 20220608
  Receipt Date: 20220608
  Transmission Date: 20220721
  Serious: Yes (Life-Threatening, Other)
  Sender: FDA-Public Use
  Company Number: CN-BoehringerIngelheim-2022-BI-174081

PATIENT
  Age: 40 Year
  Sex: Male

DRUGS (1)
  1. ALTEPLASE [Suspect]
     Active Substance: ALTEPLASE
     Indication: Cerebral infarction
     Route: 042

REACTIONS (5)
  - Aortic dissection [Unknown]
  - Cerebral haemorrhage [Unknown]
  - Epilepsy [Unknown]
  - Drug ineffective [Unknown]
  - Chest discomfort [Unknown]
